FAERS Safety Report 25671656 (Version 3)
Quarter: 2025Q3

REPORT INFORMATION
  Report Type: Spontaneous
  Country: US (occurrence: US)
  Receive Date: 20250812
  Receipt Date: 20250925
  Transmission Date: 20251021
  Serious: Yes (Death, Life-Threatening, Hospitalization, Disabling, Other)
  Sender: PFIZER
  Company Number: US-PFIZER INC-202500160530

PATIENT
  Age: 78 Year
  Sex: Female
  Weight: 55.79 kg

DRUGS (4)
  1. PAXLOVID [Suspect]
     Active Substance: NIRMATRELVIR\RITONAVIR
     Indication: COVID-19 treatment
     Dosage: [NIRMATRELVIR 300 MG]/[RITONAVIR 100 MG]
     Route: 048
     Dates: start: 20220808, end: 20220808
  2. EPINEPHRINE [Concomitant]
     Active Substance: EPINEPHRINE
  3. HYDROCODONE [Concomitant]
     Active Substance: HYDROCODONE
     Indication: Arthralgia
  4. HYDROCODONE [Concomitant]
     Active Substance: HYDROCODONE
     Indication: Pain

REACTIONS (16)
  - Anaphylactic reaction [Fatal]
  - Asphyxia [Fatal]
  - Cardiac failure congestive [Fatal]
  - Respiratory failure [Fatal]
  - Oedema [Fatal]
  - Dyspnoea [Fatal]
  - Pharyngeal swelling [Fatal]
  - Drug hypersensitivity [Fatal]
  - Pain [Fatal]
  - Myocardial infarction [Fatal]
  - Eye discharge [Unknown]
  - Rhinorrhoea [Unknown]
  - Swelling face [Unknown]
  - Lip swelling [Unknown]
  - Swollen tongue [Unknown]
  - Mutism [Unknown]

NARRATIVE: CASE EVENT DATE: 20220801
